FAERS Safety Report 13701691 (Version 1)
Quarter: 2017Q2

REPORT INFORMATION
  Report Type: Spontaneous
  Country: US (occurrence: US)
  Receive Date: 20170629
  Receipt Date: 20170629
  Transmission Date: 20170830
  Serious: No
  Sender: FDA-Public Use
  Company Number: US-BAYER-2017-124859

PATIENT
  Age: 77 Year
  Sex: Female
  Weight: 66.98 kg

DRUGS (3)
  1. MIRALAX [Suspect]
     Active Substance: POLYETHYLENE GLYCOL 3350
     Indication: GASTROINTESTINAL DISORDER
     Dosage: 1/2 TO 1 DOSE
     Route: 048
  2. PROBIOTICA [Concomitant]
     Active Substance: PROBIOTICS NOS
     Dosage: UNK
  3. ZOLOFT [Concomitant]
     Active Substance: SERTRALINE HYDROCHLORIDE
     Dosage: UNK

REACTIONS (5)
  - Underdose [Unknown]
  - Diarrhoea [Unknown]
  - Incorrect drug administration duration [Unknown]
  - Inappropriate prescribing [Unknown]
  - Therapeutic response unexpected [Unknown]
